FAERS Safety Report 9096434 (Version 1)
Quarter: 2013Q1

REPORT INFORMATION
  Report Type: Spontaneous
  Country: FR (occurrence: None)
  Receive Date: 20130124
  Receipt Date: 20130124
  Transmission Date: 20140127
  Serious: Yes (Hospitalization)
  Sender: FDA-Public Use
  Company Number: 2013000003

PATIENT
  Age: 78 Year
  Sex: Male

DRUGS (8)
  1. ACEON (PERINDOPRIL ERBUMINE) TABLET [Suspect]
     Dates: end: 20120612
  2. PRETERAX [Suspect]
     Route: 048
     Dates: start: 20120612
  3. KARDEGIC [Suspect]
  4. METFORMINE [Suspect]
     Dates: end: 20120612
  5. PERMIXON [Suspect]
  6. IMOVANE [Suspect]
  7. COSOPT [Suspect]
  8. LUMIGAN [Suspect]
     Route: 047

REACTIONS (4)
  - Orthostatic hypotension [None]
  - Malaise [None]
  - Bundle branch block bilateral [None]
  - Bundle branch block left [None]
